FAERS Safety Report 17981180 (Version 1)
Quarter: 2020Q3

REPORT INFORMATION
  Report Type: Spontaneous
  Country: FR (occurrence: FR)
  Receive Date: 20200705
  Receipt Date: 20200705
  Transmission Date: 20201103
  Serious: Yes (Other)
  Sender: FDA-Public Use
  Company Number: NVSC2020FR163420

PATIENT
  Age: 32 Year
  Sex: Male

DRUGS (1)
  1. CIPROFLOXACINE 100 MG, FILMOMHULDE TABLETTEN [Suspect]
     Active Substance: CIPROFLOXACIN HYDROCHLORIDE
     Indication: URINARY TRACT INFECTION
     Dosage: 1000 MG, QD
     Route: 048
     Dates: start: 20200415, end: 20200417

REACTIONS (2)
  - Anxiety [Recovering/Resolving]
  - Tendon disorder [Recovered/Resolved]

NARRATIVE: CASE EVENT DATE: 20200417
